FAERS Safety Report 11181880 (Version 2)
Quarter: 2015Q2

REPORT INFORMATION
  Report Type: Spontaneous
  Country: US (occurrence: US)
  Receive Date: 20150611
  Receipt Date: 20150619
  Transmission Date: 20150821
  Serious: Yes (Hospitalization, Other)
  Sender: FDA-Public Use
  Company Number: US-TOLMAR, INC.-2015US004858

PATIENT
  Age: 72 Year
  Sex: Male

DRUGS (3)
  1. GINKGO BILOBA [Concomitant]
     Active Substance: GINKGO
  2. ASPIRIN                            /00002701/ [Concomitant]
     Active Substance: ASPIRIN
     Indication: HYPERTENSION
     Dosage: 325 MG, DAILY
     Route: 065
  3. ELIGARD [Suspect]
     Active Substance: LEUPROLIDE ACETATE
     Indication: PROSTATE CANCER
     Dosage: UNK
     Route: 058
     Dates: start: 20131105, end: 20140807

REACTIONS (5)
  - Hot flush [Recovering/Resolving]
  - Dyspnoea [Unknown]
  - Peripheral swelling [Recovered/Resolved]
  - Arterial occlusive disease [Unknown]
  - Weight increased [Recovering/Resolving]

NARRATIVE: CASE EVENT DATE: 201401
